FAERS Safety Report 5136304-7 (Version None)
Quarter: 2006Q4

REPORT INFORMATION
  Report Type: 
  Country: None (occurrence: None)
  Receive Date: 20061027
  Receipt Date: 20060922
  Transmission Date: 20070319
  Serious: Yes (Other)
  Sender: FDA-Public Use
  Company Number: 463656

PATIENT
  Age: 45 Year
  Sex: Female

DRUGS (4)
  1. CARVEDILOL [Suspect]
     Indication: HYPERTENSION
     Dosage: 25MG PER DAY
     Route: 048
     Dates: start: 20060715, end: 20060615
  2. TENORMIN [Concomitant]
  3. AMLOR [Concomitant]
     Dates: start: 20051121
  4. ASAFLOW [Concomitant]
     Dates: start: 19960615

REACTIONS (4)
  - LEUKOCYTOCLASTIC VASCULITIS [None]
  - OEDEMA [None]
  - PURPURA [None]
  - RASH PAPULAR [None]
